FAERS Safety Report 5491528-4 (Version None)
Quarter: 2007Q4

REPORT INFORMATION
  Report Type: 
  Country: None (occurrence: None)
  Receive Date: 20071022
  Receipt Date: 20071016
  Transmission Date: 20080405
  Serious: Yes (Hospitalization, Other)
  Sender: FDA-Public Use
  Company Number: PHEH2006US01250

PATIENT
  Age: 42 Year
  Sex: Male

DRUGS (7)
  1. AREDIA [Suspect]
     Indication: MULTIPLE MYELOMA
     Dosage: UNK,UNK
     Dates: start: 19980101
  2. ZOMETA [Suspect]
     Indication: MULTIPLE MYELOMA
     Dosage: UNK,UNK
     Dates: start: 20020101, end: 20041012
  3. EFFEXOR XR [Concomitant]
     Dosage: 150 MG, QD
     Route: 048
  4. HYDROCODONE [Concomitant]
  5. MORPHINE SULFATE [Concomitant]
     Dosage: 30 MG, UNK
  6. ALPRAZOLAM [Concomitant]
     Dosage: 0.25 MG, PRN
  7. SPIRONOLACTONE W/ HYDROCHLOROTHIAZIDE [Concomitant]
     Dosage: UNK, QD

REACTIONS (22)
  - ABSCESS ORAL [None]
  - BONE DISORDER [None]
  - CELLULITIS [None]
  - DEEP VEIN THROMBOSIS [None]
  - DENTAL PROSTHESIS PLACEMENT [None]
  - ERYTHEMA [None]
  - FACE OEDEMA [None]
  - GINGIVAL BLEEDING [None]
  - GINGIVAL OEDEMA [None]
  - INCISIONAL DRAINAGE [None]
  - INDURATION [None]
  - ORAL PAIN [None]
  - ORAL SURGERY [None]
  - OSTEOMYELITIS [None]
  - OSTEONECROSIS [None]
  - PAIN IN JAW [None]
  - PRIMARY SEQUESTRUM [None]
  - PYREXIA [None]
  - SALIVARY DUCT OBSTRUCTION [None]
  - SWELLING [None]
  - TOOTH EXTRACTION [None]
  - TRISMUS [None]
